FAERS Safety Report 10554012 (Version 1)
Quarter: 2014Q4

REPORT INFORMATION
  Report Type: Spontaneous
  Country: JP (occurrence: JP)
  Receive Date: 20141030
  Receipt Date: 20141030
  Transmission Date: 20150529
  Serious: Yes (Death, Other)
  Sender: FDA-Public Use
  Company Number: JP-AMGEN-JPNSP2014082547

PATIENT
  Age: 71 Year
  Sex: Male

DRUGS (1)
  1. ARANESP [Suspect]
     Active Substance: DARBEPOETIN ALFA
     Indication: ANAEMIA
     Dosage: UNK
     Route: 065

REACTIONS (17)
  - Respiratory failure [Fatal]
  - Pleural effusion [Unknown]
  - Pulmonary congestion [Unknown]
  - Anaemia macrocytic [Recovering/Resolving]
  - Oedema [Unknown]
  - Kidney fibrosis [Unknown]
  - Abnormal weight gain [Recovered/Resolved]
  - Anuria [Recovering/Resolving]
  - Ceruloplasmin decreased [Unknown]
  - Pneumonia [Fatal]
  - Cardiac failure congestive [Unknown]
  - Glomerulosclerosis [Unknown]
  - Renal tubular disorder [Unknown]
  - Blood copper decreased [Unknown]
  - Mesangioproliferative glomerulonephritis [Unknown]
  - Febrile neutropenia [Recovering/Resolving]
  - Chronic kidney disease [Recovering/Resolving]
